FAERS Safety Report 12926063 (Version 2)
Quarter: 2017Q1

REPORT INFORMATION
  Report Type: Spontaneous
  Country: US (occurrence: US)
  Receive Date: 20161108
  Receipt Date: 20170209
  Transmission Date: 20170428
  Serious: No
  Sender: FDA-Public Use
  Company Number: US-SA-2016SA167668

PATIENT
  Age: 67 Year
  Sex: Female
  Weight: 71.66 kg

DRUGS (5)
  1. TEKTURNA [Concomitant]
     Active Substance: ALISKIREN HEMIFUMARATE
     Indication: HYPERTENSION
     Dosage: STRENGTH: 300 MG
     Dates: start: 2006
  2. MELATONIN [Concomitant]
     Active Substance: MELATONIN
     Indication: SLEEP DISORDER
     Dates: start: 2015
  3. LABETALOL [Concomitant]
     Active Substance: LABETALOL\LABETALOL HYDROCHLORIDE
     Indication: HYPERTENSION
     Dosage: STRENGTH: 200 MG
     Dates: start: 2006
  4. PRALUENT [Suspect]
     Active Substance: ALIROCUMAB
     Indication: BLOOD CHOLESTEROL INCREASED
     Route: 065
     Dates: start: 20160824, end: 20160825
  5. ALIROCUMAB PREFILLED PEN [Concomitant]
     Active Substance: ALIROCUMAB
     Indication: BLOOD CHOLESTEROL INCREASED
     Dates: start: 201608, end: 201608

REACTIONS (6)
  - Arthralgia [Recovered/Resolved]
  - Oedema peripheral [Recovered/Resolved]
  - Tendon pain [Recovered/Resolved]
  - Myalgia [Recovered/Resolved]
  - Gait disturbance [Recovered/Resolved]
  - Pain in extremity [Recovered/Resolved]

NARRATIVE: CASE EVENT DATE: 201608
